FAERS Safety Report 24672714 (Version 1)
Quarter: 2024Q4

REPORT INFORMATION
  Report Type: Spontaneous
  Country: US (occurrence: US)
  Receive Date: 20241127
  Receipt Date: 20241127
  Transmission Date: 20250115
  Serious: Yes (Hospitalization)
  Sender: STRIDES
  Company Number: US-STRIDES ARCOLAB LIMITED-2024SP015389

PATIENT
  Age: 24 Year
  Sex: Male

DRUGS (2)
  1. CAPTOPRIL [Suspect]
     Active Substance: CAPTOPRIL
     Indication: Hypertension
     Dosage: UNK
     Route: 065
  2. CAPTOPRIL [Suspect]
     Active Substance: CAPTOPRIL
     Indication: Acute kidney injury

REACTIONS (2)
  - Condition aggravated [Recovered/Resolved]
  - Drug ineffective for unapproved indication [Unknown]
